FAERS Safety Report 13740831 (Version 1)
Quarter: 2017Q3

REPORT INFORMATION
  Report Type: Spontaneous
  Country: CN (occurrence: CN)
  Receive Date: 20170711
  Receipt Date: 20170711
  Transmission Date: 20171127
  Serious: Yes (Hospitalization, Other)
  Sender: FDA-Public Use
  Company Number: CN-PFIZER INC-2017294103

PATIENT
  Age: 54 Year
  Sex: Female
  Weight: 77 kg

DRUGS (8)
  1. AMPHOTERICIN B. [Suspect]
     Active Substance: AMPHOTERICIN B
     Dosage: 15 MG, 1X/DAY
     Route: 041
     Dates: start: 20170414, end: 20170414
  2. AMPHOTERICIN B. [Suspect]
     Active Substance: AMPHOTERICIN B
     Dosage: 20 MG, 1X/DAY
     Route: 041
     Dates: start: 20170415, end: 20170415
  3. AMPHOTERICIN B. [Suspect]
     Active Substance: AMPHOTERICIN B
     Indication: BACTERAEMIA
     Dosage: 5 MG, 1X/DAY
     Route: 041
     Dates: start: 20170412, end: 20170412
  4. AMPHOTERICIN B. [Suspect]
     Active Substance: AMPHOTERICIN B
     Dosage: 10 MG, 1X/DAY
     Route: 041
     Dates: start: 20170413, end: 20170413
  5. DEXTROSE 5% [Concomitant]
     Active Substance: DEXTROSE
     Indication: VEHICLE SOLUTION USE
     Dosage: 100 ML, DAILY
     Route: 041
     Dates: start: 20170412, end: 20170429
  6. AMPHOTERICIN B. [Suspect]
     Active Substance: AMPHOTERICIN B
     Dosage: 25 MG, 1X/DAY
     Route: 041
     Dates: start: 20170416, end: 20170429
  7. DIFLUCAN [Suspect]
     Active Substance: FLUCONAZOLE
     Indication: BACTERAEMIA
     Dosage: 0.8 G, SINGLE AS LOADING DOSE
     Route: 041
  8. DIFLUCAN [Suspect]
     Active Substance: FLUCONAZOLE
     Dosage: 0.4 G, 1X/DAY
     Route: 041
     Dates: start: 20170414, end: 20170429

REACTIONS (1)
  - Renal impairment [Recovered/Resolved]

NARRATIVE: CASE EVENT DATE: 20170429
